FAERS Safety Report 26186868 (Version 1)
Quarter: 2025Q4

REPORT INFORMATION
  Report Type: Spontaneous
  Country: US (occurrence: US)
  Receive Date: 20251222
  Receipt Date: 20251222
  Transmission Date: 20260118
  Serious: Yes (Other)
  Sender: Day One Biopharmaceuticals
  Company Number: US-Day One Biopharmaceuticals Inc.-2025US002027

PATIENT

DRUGS (5)
  1. OJEMDA [Suspect]
     Active Substance: TOVORAFENIB
     Indication: Astrocytoma malignant
     Dosage: 600 MG, QW
     Route: 065
     Dates: start: 202511, end: 2025
  2. OJEMDA [Suspect]
     Active Substance: TOVORAFENIB
     Dosage: 400 MG, QW
     Route: 065
     Dates: start: 2025
  3. NORCO [Suspect]
     Active Substance: ACETAMINOPHEN\HYDROCODONE BITARTRATE
     Indication: Musculoskeletal pain
     Dosage: UNKNOWN
     Route: 065
  4. KEPPRA [Concomitant]
     Active Substance: LEVETIRACETAM
     Indication: Seizure
     Dosage: UNKNOWN
     Route: 065
  5. ELECTROLYTES NOS [Concomitant]
     Active Substance: ELECTROLYTES NOS
     Indication: Product used for unknown indication
     Dosage: UNKNOWN
     Route: 065

REACTIONS (6)
  - Intestinal obstruction [Unknown]
  - Musculoskeletal pain [Recovering/Resolving]
  - Insomnia [Unknown]
  - Weight decreased [Unknown]
  - Osteopenia [Unknown]
  - Constipation [Not Recovered/Not Resolved]

NARRATIVE: CASE EVENT DATE: 20250101
